FAERS Safety Report 17420179 (Version 1)
Quarter: 2020Q1

REPORT INFORMATION
  Report Type: Spontaneous
  Country: US (occurrence: US)
  Receive Date: 20200214
  Receipt Date: 20200214
  Transmission Date: 20200409
  Serious: No
  Sender: FDA-Public Use
  Company Number: US-GILEAD-2020-0451062

PATIENT
  Age: 42 Year

DRUGS (8)
  1. LEVETIRACETAM. [Concomitant]
     Active Substance: LEVETIRACETAM
  2. DULOXETINE. [Concomitant]
     Active Substance: DULOXETINE
  3. VITAMIN D [COLECALCIFEROL] [Concomitant]
     Active Substance: CHOLECALCIFEROL
  4. LOSARTAN. [Concomitant]
     Active Substance: LOSARTAN
  5. SYMTUZA [Concomitant]
     Active Substance: COBICISTAT\DARUNAVIR\EMTRICITABINE\TENOFOVIR ALAFENAMIDE
  6. ATORVASTATIN [Concomitant]
     Active Substance: ATORVASTATIN
  7. BIKTARVY [Suspect]
     Active Substance: BICTEGRAVIR SODIUM\EMTRICITABINE\TENOFOVIR ALAFENAMIDE FUMARATE
     Indication: PRODUCT USED FOR UNKNOWN INDICATION
     Dosage: UNK
     Route: 065
     Dates: start: 201907, end: 20191128
  8. RAMIPRIL. [Concomitant]
     Active Substance: RAMIPRIL

REACTIONS (1)
  - Pruritus [Unknown]
